FAERS Safety Report 8021170-2 (Version None)
Quarter: 2012Q1

REPORT INFORMATION
  Report Type: 
  Country: None (occurrence: None)
  Receive Date: 20120104
  Receipt Date: 20111222
  Transmission Date: 20120608
  Serious: Yes (Other)
  Sender: FDA-Public Use
  Company Number: CA-JNJFOC-20100601680

PATIENT
  Sex: Male
  Weight: 102.06 kg

DRUGS (2)
  1. REMICADE [Suspect]
     Indication: PSORIASIS
     Route: 042
     Dates: start: 20100526
  2. REMICADE [Suspect]
     Route: 042
     Dates: start: 20091014

REACTIONS (3)
  - HEPATIC NEOPLASM MALIGNANT [None]
  - PORTAL HYPERTENSION [None]
  - HEPATIC CIRRHOSIS [None]
